FAERS Safety Report 25486789 (Version 6)
Quarter: 2025Q3

REPORT INFORMATION
  Report Type: Spontaneous
  Country: EU (occurrence: EU)
  Receive Date: 20250627
  Receipt Date: 20250807
  Transmission Date: 20251020
  Serious: Yes (Hospitalization, Other)
  Sender: AUROBINDO
  Company Number: EU-BIAL-BIAL-19053

PATIENT
  Age: 79 Year
  Sex: Male

DRUGS (2)
  1. AMOXICILLIN\CLAVULANIC ACID [Suspect]
     Active Substance: AMOXICILLIN\CLAVULANIC ACID
     Indication: Pneumonia
     Route: 065
  2. AMOXICILLIN\CLAVULANIC ACID [Suspect]
     Active Substance: AMOXICILLIN\CLAVULANIC ACID
     Indication: Otitis externa

REACTIONS (16)
  - Abdominal distension [Recovered/Resolved]
  - Cholestasis [Recovered/Resolved]
  - Choluria [Recovered/Resolved]
  - Deficiency of bile secretion [Recovered/Resolved]
  - Drug-induced liver injury [Recovered/Resolved]
  - Jaundice [Recovered/Resolved]
  - Nausea [Recovered/Resolved]
  - Pruritus [Recovered/Resolved]
  - Vanishing bile duct syndrome [Recovered/Resolved]
  - Hyperbilirubinaemia [Recovered/Resolved]
  - Blood alkaline phosphatase increased [Recovered/Resolved]
  - Ocular icterus [Recovered/Resolved]
  - Coagulation time prolonged [Recovered/Resolved]
  - Biliary tract disorder [Recovered/Resolved]
  - Skin lesion [Recovered/Resolved]
  - Gamma-glutamyltransferase increased [Recovered/Resolved]
